FAERS Safety Report 17472475 (Version 1)
Quarter: 2020Q1

REPORT INFORMATION
  Report Type: Spontaneous
  Country: US (occurrence: US)
  Receive Date: 20200228
  Receipt Date: 20200228
  Transmission Date: 20200409
  Serious: Yes (Life-Threatening, Other)
  Sender: FDA-Public Use
  Company Number: US-CIPLA LTD.-2020US01278

PATIENT

DRUGS (2)
  1. PREDNISONE. [Concomitant]
     Active Substance: PREDNISONE
     Indication: CROHN^S DISEASE
     Dosage: 20 MILLIGRAM (TAPERED DOSE)
     Route: 065
  2. NAPROXEN. [Suspect]
     Active Substance: NAPROXEN
     Indication: PRODUCT USED FOR UNKNOWN INDICATION
     Dosage: 400 MILLIGRAM, (BID OR TID)
     Route: 065

REACTIONS (4)
  - Haemodynamic instability [Unknown]
  - Oesophagitis [Recovering/Resolving]
  - Duodenal ulcer haemorrhage [Recovered/Resolved]
  - Peptic ulcer [Recovering/Resolving]
